FAERS Safety Report 7061999-0 (Version None)
Quarter: 2010Q4

REPORT INFORMATION
  Report Type: 
  Country: None (occurrence: None)
  Receive Date: 20101026
  Receipt Date: 20101019
  Transmission Date: 20110411
  Serious: Yes (Hospitalization)
  Sender: FDA-Public Use
  Company Number: JP-BRISTOL-MYERS SQUIBB COMPANY-15316243

PATIENT
  Age: 70 Year
  Sex: Female

DRUGS (6)
  1. ABILIFY [Suspect]
     Indication: DEPRESSION
     Dosage: 6MG FROM 21AUG-10SEP10(ORAL;21DY) 12MG FROM 11SEP10-16SEP10, 6D(ORAL;DAILY)
     Route: 048
     Dates: start: 20100821, end: 20100910
  2. REBAMIPIDE [Suspect]
     Dosage: 6MG FROM 21AUG-10SEP10 (21D) 12MG FROM 11SEP10-16SE10 (6D) FORM: TABLET
  3. AMOXAN [Suspect]
     Indication: DEPRESSION
     Route: 048
     Dates: start: 20100101, end: 20100916
  4. GASMOTIN [Concomitant]
     Dosage: GASMOTIN TABLET
     Dates: end: 20100916
  5. BROTIZOLAM [Concomitant]
     Dosage: BROTIZOLAM TABS
     Dates: end: 20100916
  6. TRIAZOLAM [Concomitant]
     Dosage: TRIAZOLAM TABLET
     Dates: end: 20100916

REACTIONS (1)
  - INAPPROPRIATE ANTIDIURETIC HORMONE SECRETION [None]
